FAERS Safety Report 9780714 (Version 2)
Quarter: 2013Q4

REPORT INFORMATION
  Report Type: Spontaneous
  Country: DE (occurrence: DE)
  Receive Date: 20131224
  Receipt Date: 20131224
  Transmission Date: 20140711
  Serious: Yes (Disabling)
  Sender: FDA-Public Use
  Company Number: DE-009507513-1312DEU002858

PATIENT
  Age: 71 Year
  Sex: Female
  Weight: 60.5 kg

DRUGS (2)
  1. MIRTAZAPINE [Suspect]
     Indication: DEPRESSION
     Dosage: 30 MG, QD
     Route: 048
     Dates: start: 20111222
  2. VENLAFAXINE HYDROCHLORIDE [Concomitant]
     Indication: DEPRESSION
     Dosage: 150 MG, QD
     Dates: start: 20111129

REACTIONS (5)
  - Retinal vein thrombosis [Recovered/Resolved with Sequelae]
  - Macular oedema [Recovered/Resolved with Sequelae]
  - Retinal vein thrombosis [Recovered/Resolved with Sequelae]
  - Hypertension [Unknown]
  - Open angle glaucoma [Unknown]
